FAERS Safety Report 7609918-X (Version None)
Quarter: 2011Q3

REPORT INFORMATION
  Report Type: 
  Country: None (occurrence: None)
  Receive Date: 20110714
  Receipt Date: 20110706
  Transmission Date: 20111222
  Serious: Yes (Other)
  Sender: FDA-Public Use
  Company Number: US-ABBOTT-11P-163-0730662-00

PATIENT
  Age: 32 Year
  Sex: Female

DRUGS (8)
  1. PREDNISONE [Concomitant]
     Indication: RHEUMATOID ARTHRITIS
     Route: 048
     Dates: end: 20110703
  2. HUMIRA [Suspect]
     Indication: RHEUMATOID ARTHRITIS
     Route: 058
     Dates: start: 20110528, end: 20110629
  3. PREDNISONE [Concomitant]
     Route: 048
     Dates: start: 20110703, end: 20110705
  4. ALBUTEROL SULFATE AUTOHALER [Concomitant]
     Indication: ASTHMA
  5. GLYBURIDE [Concomitant]
     Indication: DIABETES MELLITUS
     Route: 048
  6. METHYLPROGESTERONE [Concomitant]
     Indication: UTERINE HAEMORRHAGE
     Dosage: DAILY (4 DAYS LEFT)
  7. PREDNISONE [Concomitant]
     Route: 048
     Dates: start: 20110705
  8. METFORMIN HCL [Concomitant]
     Indication: DIABETES MELLITUS
     Route: 048

REACTIONS (21)
  - URTICARIA [None]
  - LIP SWELLING [None]
  - ORAL HERPES [None]
  - HYPERSENSITIVITY [None]
  - BLOOD PRESSURE DECREASED [None]
  - MENORRHAGIA [None]
  - URINARY TRACT INFECTION [None]
  - FATIGUE [None]
  - DIZZINESS [None]
  - ANXIETY [None]
  - INJECTION SITE URTICARIA [None]
  - HEADACHE [None]
  - HYPOAESTHESIA ORAL [None]
  - PHARYNGEAL OEDEMA [None]
  - VOMITING [None]
  - DYSPHONIA [None]
  - BLOOD IRON DECREASED [None]
  - NAUSEA [None]
  - TREMOR [None]
  - CHILLS [None]
  - BLOOD GLUCOSE INCREASED [None]
